FAERS Safety Report 9888324 (Version 1)
Quarter: 2014Q1

REPORT INFORMATION
  Report Type: Spontaneous
  Country: US (occurrence: US)
  Receive Date: 20140211
  Receipt Date: 20140211
  Transmission Date: 20141002
  Serious: No
  Sender: FDA-Public Use
  Company Number: US-PFIZER INC-2014037309

PATIENT
  Age: 52 Year
  Sex: Female
  Weight: 64.4 kg

DRUGS (6)
  1. NEURONTIN [Suspect]
     Indication: RESTLESS LEGS SYNDROME
     Dosage: UNK
  2. NEURONTIN [Suspect]
     Indication: HEADACHE
     Dosage: UNK
  3. NEURONTIN [Suspect]
     Indication: PERIPHERAL COLDNESS
  4. NEURONTIN [Suspect]
     Indication: PAIN IN EXTREMITY
  5. AMPYRA [Concomitant]
     Indication: MULTIPLE SCLEROSIS
     Dosage: 10 MG, 2X/DAY
  6. AVONEX [Concomitant]
     Indication: MULTIPLE SCLEROSIS
     Dosage: UNK, WEEKLY
     Dates: start: 2002

REACTIONS (3)
  - Off label use [Unknown]
  - Malaise [Unknown]
  - Vomiting [Unknown]
